FAERS Safety Report 17361940 (Version 1)
Quarter: 2020Q1

REPORT INFORMATION
  Report Type: Spontaneous
  Country: US (occurrence: US)
  Receive Date: 20200117
  Receipt Date: 20200117
  Transmission Date: 20200409
  Serious: Yes (Hospitalization)
  Sender: FDA-Public Use
  Company Number: None

PATIENT
  Age: 59 Year

DRUGS (2)
  1. TRULICITY [Suspect]
     Active Substance: DULAGLUTIDE
     Indication: NEUROPATHIC ARTHROPATHY
     Dosage: ?          OTHER DOSE:1.5/0.5 ML;?
     Route: 058
     Dates: start: 20180829
  2. TRULICITY [Suspect]
     Active Substance: DULAGLUTIDE
     Indication: TYPE 2 DIABETES MELLITUS
     Dosage: ?          OTHER DOSE:1.5/0.5 ML;?
     Route: 058
     Dates: start: 20180829

REACTIONS (2)
  - Headache [None]
  - Vomiting [None]

NARRATIVE: CASE EVENT DATE: 20200110
